FAERS Safety Report 8791794 (Version 1)
Quarter: 2012Q4

REPORT INFORMATION
  Report Type: 
  Country: CN (occurrence: CN)
  Receive Date: 20120918
  Receipt Date: 20120918
  Transmission Date: 20130627
  Serious: Yes (Death, Other)
  Sender: FDA-Public Use
  Company Number: CN-PFIZER INC-2012058724

PATIENT
  Age: 66 Year
  Sex: Male

DRUGS (1)
  1. SUTENT [Suspect]
     Indication: RENAL CELL CARCINOMA
     Dosage: 50 mg, 1x/day
     Route: 048

REACTIONS (8)
  - Disease progression [Fatal]
  - Renal cell carcinoma [Fatal]
  - Multi-organ failure [Fatal]
  - Renal failure [Unknown]
  - Anaemia [Unknown]
  - Platelet count decreased [Unknown]
  - Gingival bleeding [Unknown]
  - Decreased appetite [Unknown]
